FAERS Safety Report 7733157-5 (Version None)
Quarter: 2011Q3

REPORT INFORMATION
  Report Type: 
  Country: None (occurrence: None)
  Receive Date: 20110902
  Receipt Date: 20110902
  Transmission Date: 20111222
  Serious: Yes (Other)
  Sender: FDA-Public Use
  Company Number: None

PATIENT
  Sex: Female
  Weight: 111.1313 kg

DRUGS (1)
  1. LORTAB [Suspect]
     Indication: SURGERY
     Dosage: 10MG 1 4 TIMES A DAY 4 TIMES A DAY
     Dates: start: 20110101

REACTIONS (5)
  - NAUSEA [None]
  - PRURITUS [None]
  - VOMITING [None]
  - DRUG EFFECT DECREASED [None]
  - PRODUCT SUBSTITUTION ISSUE [None]
